FAERS Safety Report 20018596 (Version 1)
Quarter: 2021Q4

REPORT INFORMATION
  Report Type: Spontaneous
  Country: US (occurrence: US)
  Receive Date: 20211101
  Receipt Date: 20211101
  Transmission Date: 20220303
  Serious: No
  Sender: FDA-Public Use
  Company Number: US-TEVA-2021-US-1970806

PATIENT
  Sex: Female

DRUGS (1)
  1. PROAIR HFA [Suspect]
     Active Substance: ALBUTEROL SULFATE
     Dosage: ONE PUFF
     Route: 055

REACTIONS (5)
  - Drug ineffective [Unknown]
  - Hypertension [Unknown]
  - Palpitations [Unknown]
  - Feeling jittery [Unknown]
  - Nervousness [Unknown]
